FAERS Safety Report 7433903-4 (Version None)
Quarter: 2011Q2

REPORT INFORMATION
  Report Type: 
  Country: None (occurrence: None)
  Receive Date: 20110425
  Receipt Date: 20110414
  Transmission Date: 20111010
  Serious: Yes (Hospitalization, Other)
  Sender: FDA-Public Use
  Company Number: DE-ELI_LILLY_AND_COMPANY-DE201104004433

PATIENT
  Age: 83 Year
  Sex: Female

DRUGS (3)
  1. MTX [Concomitant]
  2. CORTISONE [Concomitant]
     Dosage: UNK
     Dates: start: 19960101
  3. FORTEO [Suspect]
     Indication: OSTEOPOROSIS
     Dosage: UNK, UNKNOWN
     Route: 058
     Dates: start: 20100419, end: 20110301

REACTIONS (1)
  - CEREBROVASCULAR ACCIDENT [None]
